FAERS Safety Report 8017311-3 (Version None)
Quarter: 2012Q1

REPORT INFORMATION
  Report Type: 
  Country: None (occurrence: None)
  Receive Date: 20120102
  Receipt Date: 20111219
  Transmission Date: 20120608
  Serious: Yes (Death)
  Sender: FDA-Public Use
  Company Number: US-PFIZER INC-2011311328

PATIENT
  Age: 59 Year
  Sex: Female

DRUGS (9)
  1. BUSPIRONE HCL [Suspect]
     Dosage: UNK
     Route: 048
  2. ALPRAZOLAM [Suspect]
     Dosage: UNK
     Route: 048
  3. ENALAPRIL MALEATE [Suspect]
     Dosage: UNK
     Route: 048
  4. CARBAMAZEPINE [Suspect]
     Dosage: UNK
     Route: 048
  5. HYDROXYCHLOROQUINE SULFATE [Suspect]
     Dosage: UNK
     Route: 048
  6. OMEPRAZOLE [Suspect]
     Dosage: UNK
     Route: 048
  7. ACETAMINOPHEN AND HYDROCODONE BITARTRATE [Suspect]
     Dosage: UNK
     Route: 048
  8. PREDNISONE TAB [Suspect]
     Dosage: UNK
     Route: 048
  9. ATENOLOL [Suspect]
     Dosage: UNK
     Route: 048

REACTIONS (1)
  - COMPLETED SUICIDE [None]
